FAERS Safety Report 4432469-0 (Version None)
Quarter: 2004Q3

REPORT INFORMATION
  Report Type: 
  Country: None (occurrence: None)
  Receive Date: 20040819
  Receipt Date: 20040730
  Transmission Date: 20050211
  Serious: Yes (Hospitalization, Other)
  Sender: FDA-Public Use
  Company Number: USA040774091

PATIENT
  Sex: Male

DRUGS (6)
  1. HUMULIN R [Suspect]
  2. HUMULIN R [Suspect]
     Indication: DIABETES MELLITUS
     Dosage: 20 UG DAY
     Dates: start: 19840101
  3. NIFEDIPINE (NIFEIDIPINE) [Concomitant]
  4. FUROSEMIDE [Concomitant]
  5. WARFARIN SODIUM [Concomitant]
  6. COZAAR [Concomitant]

REACTIONS (4)
  - CARDIAC OPERATION [None]
  - CEREBROVASCULAR ACCIDENT [None]
  - DRUG EFFECT DECREASED [None]
  - PHARMACEUTICAL PRODUCT COMPLAINT [None]
